FAERS Safety Report 19505648 (Version 1)
Quarter: 2021Q3

REPORT INFORMATION
  Report Type: Spontaneous
  Country: US (occurrence: US)
  Receive Date: 20210708
  Receipt Date: 20210708
  Transmission Date: 20211014
  Serious: Yes (Other)
  Sender: FDA-Public Use
  Company Number: None

PATIENT
  Age: 40 Year
  Sex: Female
  Weight: 108 kg

DRUGS (2)
  1. MEDROXYPROGESTERONE/ DEPO?PROVERA [Suspect]
     Active Substance: MEDROXYPROGESTERONE
     Indication: HAEMORRHAGE
     Dosage: ?          QUANTITY:1 INJECTION(S);OTHER FREQUENCY:EVERY 3 MONTHS;?
     Route: 058
     Dates: start: 20201220, end: 20210316
  2. MEDROXYPROGESTERONE/ DEPO?PROVERA [Suspect]
     Active Substance: MEDROXYPROGESTERONE
     Indication: MUSCLE SPASMS
     Dosage: ?          QUANTITY:1 INJECTION(S);OTHER FREQUENCY:EVERY 3 MONTHS;?
     Route: 058
     Dates: start: 20201220, end: 20210316

REACTIONS (5)
  - Asthenia [None]
  - Blood pressure fluctuation [None]
  - Product complaint [None]
  - Heavy menstrual bleeding [None]
  - Fatigue [None]

NARRATIVE: CASE EVENT DATE: 20210221
